FAERS Safety Report 15387592 (Version 3)
Quarter: 2019Q1

REPORT INFORMATION
  Report Type: Spontaneous
  Country: US (occurrence: US)
  Receive Date: 20180914
  Receipt Date: 20190308
  Transmission Date: 20190417
  Serious: Yes (Other)
  Sender: FDA-Public Use
  Company Number: US-ACTELION-A-NJ2018-178711

PATIENT
  Age: 80 Year
  Sex: Male
  Weight: 102.04 kg

DRUGS (2)
  1. UPTRAVI [Suspect]
     Active Substance: SELEXIPAG
     Indication: PULMONARY ARTERIAL HYPERTENSION
     Dosage: 200 MCG, BID
     Route: 048
     Dates: start: 20170207
  2. ADEMPAS [Concomitant]
     Active Substance: RIOCIGUAT

REACTIONS (3)
  - Dialysis [Unknown]
  - Hypotension [Unknown]
  - Haemorrhage [Unknown]

NARRATIVE: CASE EVENT DATE: 20180626
